FAERS Safety Report 9319802 (Version 2)
Quarter: 2013Q2

REPORT INFORMATION
  Report Type: Spontaneous
  Country: FR (occurrence: None)
  Receive Date: 20130328
  Receipt Date: 20130430
  Transmission Date: 20140414
  Serious: Yes (Death)
  Sender: FDA-Public Use
  Company Number: 220853

PATIENT
  Age: 77 Year
  Sex: Male
  Weight: 68 kg

DRUGS (7)
  1. INNOHEP [Suspect]
     Indication: PULMONARY EMBOLISM
     Route: 058
     Dates: start: 20130116, end: 20130315
  2. RUXOLITINIB [Suspect]
     Indication: MYELOFIBROSIS
     Route: 048
     Dates: start: 20111115, end: 20130315
  3. PREDNISONE (PREDNISONE) [Concomitant]
  4. HYDREA (HYDROXYCARBAMIDE) [Concomitant]
  5. PLAVIX (CLOPIDOGREL) (TABLET) [Concomitant]
  6. NEOCORMON (EPOETIN BETA) [Concomitant]
  7. CORTANCYL (PREDNISONE) [Concomitant]

REACTIONS (23)
  - Muscle haemorrhage [None]
  - Haemorrhagic ascites [None]
  - Splenomegaly [None]
  - Hepatomegaly [None]
  - Portal vein dilatation [None]
  - Haemoglobin decreased [None]
  - Splenic cyst [None]
  - Cyst [None]
  - Blood bilirubin increased [None]
  - Gamma-glutamyltransferase increased [None]
  - Aspartate aminotransferase increased [None]
  - Platelet count decreased [None]
  - Pulmonary embolism [None]
  - General physical health deterioration [None]
  - Hypovolaemic shock [None]
  - Haematemesis [None]
  - Oesophageal varices haemorrhage [None]
  - Incorrect drug administration duration [None]
  - Myelofibrosis [None]
  - Disease progression [None]
  - Malignant neoplasm progression [None]
  - Alanine aminotransferase increased [None]
  - Blood alkaline phosphatase increased [None]
